FAERS Safety Report 11913062 (Version 3)
Quarter: 2016Q1

REPORT INFORMATION
  Report Type: Report from Study
  Country: CA (occurrence: CA)
  Receive Date: 20160113
  Receipt Date: 20160205
  Transmission Date: 20160526
  Serious: Yes (Other)
  Sender: FDA-Public Use
  Company Number: PHHY2016CA002416

PATIENT
  Age: 56 Year
  Sex: Female

DRUGS (2)
  1. GILENYA [Suspect]
     Active Substance: FINGOLIMOD HYDROCHLORIDE
     Indication: MULTIPLE SCLEROSIS
     Dosage: 0.5 MG, UNK
     Route: 048
     Dates: start: 20131204, end: 20151216
  2. GILENYA [Suspect]
     Active Substance: FINGOLIMOD HYDROCHLORIDE
     Dosage: 0.5 MG, UNK
     Route: 048
     Dates: start: 20160112

REACTIONS (3)
  - Urinary tract infection [Unknown]
  - Lymphocyte count decreased [Recovering/Resolving]
  - Multiple sclerosis relapse [Unknown]

NARRATIVE: CASE EVENT DATE: 201512
